FAERS Safety Report 4749029-4 (Version None)
Quarter: 2005Q3

REPORT INFORMATION
  Report Type: 
  Country: None (occurrence: None)
  Receive Date: 20050819
  Receipt Date: 20050620
  Transmission Date: 20060218
  Serious: Yes (Hospitalization)
  Sender: FDA-Public Use
  Company Number: PHHO2005ES09646

PATIENT
  Age: 58 Year
  Sex: Male
  Weight: 65 kg

DRUGS (1)
  1. NEORAL [Suspect]
     Indication: LIVER TRANSPLANT
     Dosage: 1400 MG/DAILY
     Route: 048
     Dates: start: 20050531, end: 20050710

REACTIONS (4)
  - AGGRESSION [None]
  - ANXIETY [None]
  - PSYCHOTIC DISORDER [None]
  - SUBCLAVIAN VEIN THROMBOSIS [None]
